FAERS Safety Report 9106182 (Version 1)
Quarter: 2013Q1

REPORT INFORMATION
  Report Type: Spontaneous
  Country: US (occurrence: US)
  Receive Date: 20130221
  Receipt Date: 20130221
  Transmission Date: 20140127
  Serious: Yes (Hospitalization, Other)
  Sender: FDA-Public Use
  Company Number: CHPA2013US003180

PATIENT
  Age: 61 Year
  Sex: Female

DRUGS (2)
  1. CONTROL PLP [Suspect]
     Indication: SMOKING CESSATION THERAPY
     Dosage: 14 MG, QD
     Route: 062
     Dates: start: 20130202
  2. CONTROL PLP [Suspect]
     Dosage: UNK, UNK
     Route: 062
     Dates: start: 2006

REACTIONS (4)
  - Dyspnoea [Unknown]
  - Malaise [Unknown]
  - Overdose [Unknown]
  - Treatment noncompliance [Unknown]
